FAERS Safety Report 26019857 (Version 1)
Quarter: 2025Q4

REPORT INFORMATION
  Report Type: Other
  Country: US (occurrence: US)
  Receive Date: 20251110
  Receipt Date: 20251110
  Transmission Date: 20260117
  Serious: Yes (Hospitalization)
  Sender: ALVOGEN
  Company Number: US-ALVOGEN-2025098960

PATIENT
  Age: 15 Year
  Sex: Male

DRUGS (5)
  1. NIFEDIPINE [Suspect]
     Active Substance: NIFEDIPINE
     Indication: Hypertension
     Dosage: 30 MG
     Dates: start: 202206, end: 2024
  2. TACROLIMUS [Concomitant]
     Active Substance: TACROLIMUS
     Indication: Postoperative care
     Dosage: 3MG TWICE A DAY
  3. PREDNISONE [Concomitant]
     Active Substance: PREDNISONE
     Indication: Postoperative care
     Dosage: 20 MG DAILY
  4. MYCOPHENOLATE MOFETIL [Concomitant]
     Active Substance: MYCOPHENOLATE MOFETIL
     Indication: Postoperative care
     Dosage: 3 TABLETS (540 MG) ORALLY EVERY MORNING, TWO TABLETS (360 MG) EVERY EVENING
  5. THYMOGLOBULIN [Concomitant]
     Active Substance: LAPINE T-LYMPHOCYTE IMMUNE GLOBULIN
     Indication: Postoperative care
     Dosage: 6 MG/KG OF IV FOR FOUR DOSES
     Route: 042

REACTIONS (4)
  - Mastication disorder [Recovered/Resolved]
  - Sleep-related breathing disorder [Unknown]
  - Gingival hypertrophy [Recovered/Resolved]
  - Weight decreased [Recovered/Resolved]

NARRATIVE: CASE EVENT DATE: 20230101
